FAERS Safety Report 8045559-0 (Version None)
Quarter: 2012Q1

REPORT INFORMATION
  Report Type: 
  Country: None (occurrence: None)
  Receive Date: 20120113
  Receipt Date: 20120105
  Transmission Date: 20120608
  Serious: Yes (Other)
  Sender: FDA-Public Use
  Company Number: US-PFIZER INC-2012004041

PATIENT
  Sex: Female
  Weight: 26.304 kg

DRUGS (3)
  1. GLYSET [Suspect]
     Indication: PANCREATITIS
     Dosage: 100 MG, 3X/DAY
     Route: 048
     Dates: start: 20070101
  2. BLACK COHOSH [Concomitant]
     Dosage: UNK
  3. GLYSET [Suspect]
     Dosage: 50 MG, 3X/DAY
     Route: 048

REACTIONS (5)
  - NAUSEA [None]
  - ASTHENIA [None]
  - GAIT DISTURBANCE [None]
  - COGNITIVE DISORDER [None]
  - FATIGUE [None]
